FAERS Safety Report 25883906 (Version 1)
Quarter: 2025Q4

REPORT INFORMATION
  Report Type: Other
  Country: EU (occurrence: EU)
  Receive Date: 20251006
  Receipt Date: 20251006
  Transmission Date: 20260117
  Serious: Yes (Hospitalization)
  Sender: Atnahs Healthcare
  Company Number: None

PATIENT

DRUGS (3)
  1. VALIUM [Suspect]
     Active Substance: DIAZEPAM
     Indication: Drug dependence
     Dosage: UNK
     Route: 065
     Dates: start: 2017
  2. CANNABIS SATIVA SUBSP. INDICA TOP [Suspect]
     Active Substance: CANNABIS SATIVA SUBSP. INDICA TOP
     Indication: Product used for unknown indication
     Dosage: UNK
     Dates: start: 2005
  3. OXAZEPAM [Suspect]
     Active Substance: OXAZEPAM
     Indication: Drug dependence
     Dosage: UNK
     Route: 065
     Dates: start: 2017

REACTIONS (1)
  - Drug dependence [Recovering/Resolving]
